FAERS Safety Report 7469004-9 (Version None)
Quarter: 2011Q2

REPORT INFORMATION
  Report Type: 
  Country: None (occurrence: None)
  Receive Date: 20110510
  Receipt Date: 20110421
  Transmission Date: 20111010
  Serious: No
  Sender: FDA-Public Use
  Company Number: US-JNJFOC-20071102688

PATIENT
  Sex: Female
  Weight: 59.88 kg

DRUGS (5)
  1. XANAX [Concomitant]
     Indication: MUSCLE SPASMS
     Route: 048
  2. DURAGESIC-50 [Suspect]
     Indication: SURGERY
     Dosage: 100MCG X 2= 200MCG
     Route: 062
  3. NEXIUM [Concomitant]
     Indication: ULCER
     Route: 048
  4. LYRICA [Concomitant]
     Indication: MUSCLE SPASMS
     Route: 048
  5. MOBIC [Concomitant]
     Indication: INFLAMMATION
     Route: 048

REACTIONS (3)
  - INCORRECT DOSE ADMINISTERED [None]
  - DRUG SCREEN NEGATIVE [None]
  - INAPPROPRIATE SCHEDULE OF DRUG ADMINISTRATION [None]
